FAERS Safety Report 17702633 (Version 1)
Quarter: 2020Q2

REPORT INFORMATION
  Report Type: Spontaneous
  Country: US (occurrence: US)
  Receive Date: 20200423
  Receipt Date: 20200423
  Transmission Date: 20200714
  Serious: No
  Sender: FDA-Public Use
  Company Number: US-BRACCO-2020US00215

PATIENT
  Age: 3 Year
  Sex: Female

DRUGS (1)
  1. LIQUID POLIBAR PLUS [Suspect]
     Active Substance: BARIUM SULFATE
     Indication: COMPUTERISED TOMOGRAM INTESTINE
     Dosage: DILUTED 1 PART CONTRAST WITH 5 PARTS WATER
     Route: 054
     Dates: start: 20200113, end: 20200113

REACTIONS (1)
  - Drug ineffective [Unknown]

NARRATIVE: CASE EVENT DATE: 20200113
